FAERS Safety Report 26101247 (Version 2)
Quarter: 2025Q4

REPORT INFORMATION
  Report Type: Spontaneous
  Country: EU (occurrence: None)
  Receive Date: 20251128
  Receipt Date: 20251216
  Transmission Date: 20260117
  Serious: Yes (Other)
  Sender: UCB
  Company Number: EU-UCBSA-2025074041

PATIENT
  Age: 49 Year

DRUGS (1)
  1. CIMZIA [Suspect]
     Active Substance: CERTOLIZUMAB PEGOL
     Indication: Axial spondyloarthritis
     Dosage: 400 MILLIGRAM, EV 2 WEEKS(QOW)

REACTIONS (1)
  - Pneumonitis [Recovering/Resolving]
